FAERS Safety Report 10901531 (Version 3)
Quarter: 2020Q2

REPORT INFORMATION
  Report Type: Report from Study
  Country: US (occurrence: US)
  Receive Date: 20150310
  Receipt Date: 20200429
  Transmission Date: 20200713
  Serious: Yes (Hospitalization, Other)
  Sender: FDA-Public Use
  Company Number: US-SA-2014SA105899

PATIENT
  Age: 67 Year
  Sex: Female

DRUGS (3)
  1. TERIFLUNOMIDE. [Suspect]
     Active Substance: TERIFLUNOMIDE
     Dosage: 14 MG, QD
     Route: 048
  2. TERIFLUNOMIDE. [Suspect]
     Active Substance: TERIFLUNOMIDE
     Indication: MULTIPLE SCLEROSIS
     Dosage: 14 MG,QD
     Route: 048
     Dates: start: 20140211, end: 20160805
  3. CORDARONE [Concomitant]
     Active Substance: AMIODARONE HYDROCHLORIDE
     Dosage: UNK

REACTIONS (18)
  - Blood potassium decreased [Unknown]
  - Seizure [Unknown]
  - Blood count abnormal [Unknown]
  - Paraesthesia [Unknown]
  - Trigeminal neuralgia [Not Recovered/Not Resolved]
  - Pain in jaw [Not Recovered/Not Resolved]
  - Peripheral swelling [Not Recovered/Not Resolved]
  - Gait inability [Unknown]
  - Facial pain [Not Recovered/Not Resolved]
  - Peripheral nerve operation [Unknown]
  - Asthenia [Unknown]
  - Hypertension [Unknown]
  - Pain in jaw [Recovering/Resolving]
  - Ulcer [Recovering/Resolving]
  - Multiple sclerosis relapse [Unknown]
  - Pain [Unknown]
  - Tooth extraction [Recovered/Resolved]
  - Product supply issue [Unknown]

NARRATIVE: CASE EVENT DATE: 201405
